FAERS Safety Report 9471691 (Version 5)
Quarter: 2013Q4

REPORT INFORMATION
  Report Type: Spontaneous
  Country: US (occurrence: US)
  Receive Date: 20130822
  Receipt Date: 20131106
  Transmission Date: 20140711
  Serious: Yes (Other)
  Sender: FDA-Public Use
  Company Number: US-GILEAD-2013-0081488

PATIENT
  Age: 58 Year
  Sex: Female

DRUGS (4)
  1. LETAIRIS [Suspect]
     Indication: PULMONARY ARTERIAL HYPERTENSION
     Dosage: 10 MG, QD
     Dates: start: 20090611
  2. LETAIRIS [Suspect]
     Indication: THERAPEUTIC PROCEDURE
  3. REVATIO [Concomitant]
  4. ADCIRCA [Concomitant]

REACTIONS (6)
  - Blood potassium decreased [Unknown]
  - Syncope [Recovered/Resolved]
  - Cardiac function test abnormal [Unknown]
  - Syncope [Unknown]
  - Syncope [Unknown]
  - Dizziness [Unknown]
